FAERS Safety Report 6278181-7 (Version None)
Quarter: 2009Q3

REPORT INFORMATION
  Report Type: 
  Country: None (occurrence: None)
  Receive Date: 20090722
  Receipt Date: 20090710
  Transmission Date: 20100115
  Serious: Yes (Hospitalization)
  Sender: FDA-Public Use
  Company Number: US-WYE-H10091909

PATIENT
  Sex: Female
  Weight: 87.62 kg

DRUGS (4)
  1. PRISTIQ [Suspect]
     Indication: DEPRESSION
     Route: 048
     Dates: start: 20090401, end: 20090623
  2. PEXEVA [Suspect]
     Indication: DEPRESSION
     Dates: start: 20090625, end: 20090627
  3. AVAPRO [Concomitant]
     Indication: HYPERTENSION
     Dosage: UNKNOWN
  4. LORAZEPAM [Concomitant]
     Indication: ANXIETY
     Dosage: UNKNOWN DOSE, AS NEEDED

REACTIONS (2)
  - DRUG WITHDRAWAL SYNDROME [None]
  - VOMITING [None]
